FAERS Safety Report 6636493-9 (Version None)
Quarter: 2010Q1

REPORT INFORMATION
  Report Type: 
  Country: None (occurrence: None)
  Receive Date: 20100316
  Receipt Date: 20100315
  Transmission Date: 20100710
  Serious: Yes (Other)
  Sender: FDA-Public Use
  Company Number: JP-SANOFI-AVENTIS-2010SA008919

PATIENT
  Age: 75 Year
  Sex: Male

DRUGS (3)
  1. PLAVIX [Suspect]
     Indication: MYOCARDIAL INFARCTION
     Route: 048
     Dates: start: 20100206, end: 20100215
  2. ASPIRIN [Concomitant]
     Route: 048
     Dates: start: 20100206
  3. PLETAL [Concomitant]
     Dates: start: 20100116

REACTIONS (5)
  - BLOOD POTASSIUM INCREASED [None]
  - BLOOD SODIUM DECREASED [None]
  - DECREASED APPETITE [None]
  - GENERAL PHYSICAL CONDITION ABNORMAL [None]
  - NAUSEA [None]
